FAERS Safety Report 6254284-8 (Version None)
Quarter: 2009Q3

REPORT INFORMATION
  Report Type: 
  Country: None (occurrence: None)
  Receive Date: 20090701
  Receipt Date: 20090701
  Transmission Date: 20100115
  Serious: Yes (Hospitalization)
  Sender: FDA-Public Use
  Company Number: None

PATIENT
  Age: 30 Year
  Sex: Male
  Weight: 106.5953 kg

DRUGS (2)
  1. METHASTADROL [Suspect]
     Indication: MUSCLE BUILDING THERAPY
     Dosage: 1 PILL DAILY PO
     Route: 048
  2. ANADROL [Suspect]
     Indication: MUSCLE BUILDING THERAPY
     Dosage: 1 PILL DAILY PO
     Route: 048

REACTIONS (4)
  - BLOOD BILIRUBIN INCREASED [None]
  - CHROMATURIA [None]
  - JAUNDICE [None]
  - TRANSAMINASES INCREASED [None]
